FAERS Safety Report 4300406-5 (Version None)
Quarter: 2004Q1

REPORT INFORMATION
  Report Type: 
  Country: None (occurrence: None)
  Receive Date: 20040218
  Receipt Date: 20040218
  Transmission Date: 20041129
  Serious: Yes (Hospitalization)
  Sender: FDA-Public Use
  Company Number: None

PATIENT
  Age: 64 Year
  Sex: Male
  Weight: 93.6 kg

DRUGS (8)
  1. NAPROXEN [Suspect]
     Indication: ARTHRITIS
     Dosage: 500 MG BID
  2. DILTIZEM [Concomitant]
  3. FOSINOPRIL SODIUM [Concomitant]
  4. GLYBURIDE [Concomitant]
  5. HYDROCHLOROTHIAZIDE [Concomitant]
  6. LORATADINE [Concomitant]
  7. MISOPROSTOL [Concomitant]
  8. TERAZOSIN HCL [Concomitant]

REACTIONS (4)
  - ABDOMINAL DISTENSION [None]
  - DECREASED APPETITE [None]
  - DYSPNOEA [None]
  - RENAL FAILURE ACUTE [None]
